FAERS Safety Report 17429969 (Version 4)
Quarter: 2020Q2

REPORT INFORMATION
  Report Type: Spontaneous
  Country: US (occurrence: US)
  Receive Date: 20200218
  Receipt Date: 20200415
  Transmission Date: 20200713
  Serious: Yes (Other)
  Sender: FDA-Public Use
  Company Number: US-PFIZER INC-2019108377

PATIENT
  Age: 69 Year
  Sex: Female
  Weight: 68 kg

DRUGS (3)
  1. LYRICA [Suspect]
     Active Substance: PREGABALIN
     Dosage: 75 MG, FIVE TIMES A DAY (TAKE 1 CAPSULE (75 MG TOTAL) BY MOUTH 5 (FIVE) TIMES A DAY)
     Route: 048
  2. LYRICA [Suspect]
     Active Substance: PREGABALIN
     Indication: NEURALGIA
     Dosage: 75 MG, FIVE TIMES A DAY
     Route: 048
     Dates: start: 20190306
  3. LYRICA [Suspect]
     Active Substance: PREGABALIN
     Dosage: 75 MG, FIVE TIMES A DAY (TAKE 1 CAPSULE (75 MG TOTAL) BY MOUTH 5 (FIVE) TIMES A DAY)
     Route: 048
     Dates: start: 20190410

REACTIONS (2)
  - Pain [Unknown]
  - Osteoarthritis [Unknown]
